FAERS Safety Report 24576606 (Version 1)
Quarter: 2024Q4

REPORT INFORMATION
  Report Type: Spontaneous
  Country: NZ (occurrence: NZ)
  Receive Date: 20241104
  Receipt Date: 20241104
  Transmission Date: 20250114
  Serious: Yes (Other)
  Sender: ELI LILLY AND COMPANY
  Company Number: NZ-ELI_LILLY_AND_COMPANY-NZ202404014931

PATIENT
  Age: 7 Year
  Sex: Male
  Weight: 35 kg

DRUGS (1)
  1. VERZENIO [Suspect]
     Active Substance: ABEMACICLIB
     Indication: Brain stem glioma
     Dosage: 150 MG, BID
     Route: 065

REACTIONS (4)
  - Radiation necrosis [Unknown]
  - Malignant neoplasm progression [Unknown]
  - Off label use [Unknown]
  - Diarrhoea [Unknown]
